FAERS Safety Report 24083704 (Version 1)
Quarter: 2024Q3

REPORT INFORMATION
  Report Type: Spontaneous
  Country: US (occurrence: None)
  Receive Date: 20240711
  Receipt Date: 20240711
  Transmission Date: 20241016
  Serious: No
  Sender: Public
  Company Number: None

PATIENT
  Age: 36 Year
  Sex: Female
  Weight: 68.49 kg

DRUGS (1)
  1. BENLYSTA [Suspect]
     Active Substance: BELIMUMAB
     Indication: Systemic lupus erythematosus
     Dosage: INJECT 400MG (2 PENS) SUBCUTANEOUSLY ONCE A WEEK FOR 4 WEEKS , THEN 200MG (1 PEN) ONCE A W ...?
     Route: 058
     Dates: start: 202310

REACTIONS (1)
  - COVID-19 [None]
